FAERS Safety Report 22166307 (Version 1)
Quarter: 2023Q2

REPORT INFORMATION
  Report Type: Spontaneous
  Country: CN (occurrence: CN)
  Receive Date: 20230403
  Receipt Date: 20230403
  Transmission Date: 20230721
  Serious: Yes (Other)
  Sender: FDA-Public Use
  Company Number: CN-PFIZER INC-PV202300059990

PATIENT
  Age: 3 Year
  Sex: Female
  Weight: 18 kg

DRUGS (2)
  1. AZITHROMYCIN [Suspect]
     Active Substance: AZITHROMYCIN
     Indication: Cough
     Dosage: 200 MG, 1X/DAY
     Route: 048
     Dates: start: 20230317, end: 20230317
  2. MONTELUKAST SODIUM [Suspect]
     Active Substance: MONTELUKAST SODIUM
     Indication: Cough
     Dosage: 4 MG, 1X/DAY
     Route: 048
     Dates: start: 20230317, end: 20230317

REACTIONS (3)
  - Dermatitis allergic [Unknown]
  - Pruritus [Unknown]
  - Bronchitis [Unknown]

NARRATIVE: CASE EVENT DATE: 20230317
